FAERS Safety Report 9495363 (Version 1)
Quarter: 2013Q3

REPORT INFORMATION
  Report Type: Spontaneous
  Country: GB (occurrence: GB)
  Receive Date: 20130903
  Receipt Date: 20130903
  Transmission Date: 20140515
  Serious: Yes (Hospitalization)
  Sender: FDA-Public Use
  Company Number: GB-GLAXOSMITHKLINE-B0918190A

PATIENT
  Age: 96 Year
  Sex: Female

DRUGS (14)
  1. ACICLOVIR [Suspect]
     Indication: HERPES ZOSTER
     Dosage: 2500MG PER DAY
     Route: 048
     Dates: start: 20130628, end: 20130705
  2. LATANOPROST [Concomitant]
  3. ASPIRIN [Concomitant]
  4. LEVOTHYROXINE [Concomitant]
  5. MINITRAN [Concomitant]
  6. PARACETAMOL [Concomitant]
  7. SALBUTAMOL [Concomitant]
  8. RANITIDINE [Concomitant]
  9. QVAR [Concomitant]
  10. AMLODIPINE [Concomitant]
  11. OXYBUTYNIN [Concomitant]
  12. FEXOFENADINE [Concomitant]
  13. HYDROXYZINE [Concomitant]
  14. DIAZEPAM [Concomitant]

REACTIONS (1)
  - Hyponatraemia [Recovered/Resolved]
